FAERS Safety Report 6285921-X (Version None)
Quarter: 2009Q3

REPORT INFORMATION
  Report Type: 
  Country: None (occurrence: None)
  Receive Date: 20090728
  Receipt Date: 20080812
  Transmission Date: 20100115
  Serious: No
  Sender: FDA-Public Use
  Company Number: A0742439A

PATIENT
  Age: 64 Year
  Sex: Female

DRUGS (3)
  1. DYAZIDE [Suspect]
     Indication: HYPERTENSION
     Dosage: 1CAP PER DAY
     Route: 048
     Dates: end: 20080730
  2. NORVASC [Concomitant]
  3. ZYRTEC [Concomitant]

REACTIONS (1)
  - OEDEMA PERIPHERAL [None]
